FAERS Safety Report 7293252-4 (Version None)
Quarter: 2011Q1

REPORT INFORMATION
  Report Type: 
  Country: None (occurrence: None)
  Receive Date: 20110215
  Receipt Date: 20110208
  Transmission Date: 20110831
  Serious: Yes (Death, Hospitalization)
  Sender: FDA-Public Use
  Company Number: JP-ROCHE-605252

PATIENT
  Sex: Male
  Weight: 49.8 kg

DRUGS (8)
  1. TOCILIZUMAB [Suspect]
     Indication: RHEUMATOID ARTHRITIS
     Route: 041
     Dates: start: 20080730, end: 20080730
  2. TOCILIZUMAB [Suspect]
     Route: 041
     Dates: start: 20081020, end: 20081020
  3. MUCODYNE [Concomitant]
     Route: 048
     Dates: end: 20081218
  4. MICARDIS [Concomitant]
     Route: 048
     Dates: end: 20081218
  5. KLARICID [Concomitant]
     Dosage: ORAL FORMULATION NOS
     Route: 048
     Dates: end: 20081218
  6. BASEN [Concomitant]
     Route: 048
     Dates: end: 20081218
  7. TOCILIZUMAB [Suspect]
     Route: 041
     Dates: start: 20080922, end: 20080922
  8. CELECOXIB [Concomitant]
     Dosage: DRUG NAME REPORTED AS CELECOX
     Route: 048
     Dates: end: 20080911

REACTIONS (11)
  - HEPATIC FUNCTION ABNORMAL [None]
  - MALAISE [None]
  - SHOCK [None]
  - RENAL FAILURE ACUTE [None]
  - DECREASED APPETITE [None]
  - NO THERAPEUTIC RESPONSE [None]
  - PLATELET COUNT DECREASED [None]
  - SEPSIS [None]
  - MYOCARDITIS [None]
  - UPPER RESPIRATORY TRACT INFLAMMATION [None]
  - WEIGHT INCREASED [None]
